FAERS Safety Report 23577019 (Version 1)
Quarter: 2024Q1

REPORT INFORMATION
  Report Type: Spontaneous
  Country: US (occurrence: US)
  Receive Date: 20240228
  Receipt Date: 20240228
  Transmission Date: 20240410
  Serious: No
  Sender: FDA-Public Use
  Company Number: US-PFIZER INC-PV202300167991

PATIENT
  Age: 72 Year
  Sex: Male
  Weight: 84.4 kg

DRUGS (1)
  1. TALZENNA [Suspect]
     Active Substance: TALAZOPARIB TOSYLATE
     Indication: Prostate cancer metastatic
     Dosage: 0.5 MG, DAILY
     Route: 048
     Dates: start: 20230920

REACTIONS (1)
  - Bronchitis [Unknown]
